FAERS Safety Report 18332499 (Version 1)
Quarter: 2020Q4

REPORT INFORMATION
  Report Type: Spontaneous
  Country: AT (occurrence: AT)
  Receive Date: 20201001
  Receipt Date: 20201001
  Transmission Date: 20210113
  Serious: Yes (Life-Threatening)
  Sender: FDA-Public Use
  Company Number: AT-IBIGEN-2020.09339

PATIENT
  Age: 63 Year
  Sex: Female
  Weight: 121 kg

DRUGS (2)
  1. CURAM INTRAVENOS 2000 MG/200 MG [Suspect]
     Active Substance: AMOXICILLIN\CLAVULANATE POTASSIUM
     Indication: PNEUMONIA
     Dosage: 3X2,2G TGL
     Route: 042
     Dates: start: 20200719, end: 20200729
  2. PIPERACILLIN/TAZOBACTAM 4 G/0,5 G [Suspect]
     Active Substance: PIPERACILLIN SODIUM\TAZOBACTAM SODIUM
     Indication: PNEUMONIA
     Dosage: 3X4,5G TAGLICH
     Route: 042
     Dates: start: 20200729, end: 20200810

REACTIONS (1)
  - Drug reaction with eosinophilia and systemic symptoms [Not Recovered/Not Resolved]

NARRATIVE: CASE EVENT DATE: 20200811
